FAERS Safety Report 13415893 (Version 2)
Quarter: 2017Q2

REPORT INFORMATION
  Report Type: Report from Study
  Country: None (occurrence: BR)
  Receive Date: 20170406
  Receipt Date: 20170511
  Transmission Date: 20170830
  Serious: Yes (Other)
  Sender: FDA-Public Use
  Company Number: BR-ABBVIE-17P-020-1935390-00

PATIENT
  Sex: Female
  Weight: 70 kg

DRUGS (3)
  1. SYNTHROID [Suspect]
     Active Substance: LEVOTHYROXINE SODIUM
     Route: 048
  2. SYNTHROID [Suspect]
     Active Substance: LEVOTHYROXINE SODIUM
     Route: 048
  3. SYNTHROID [Suspect]
     Active Substance: LEVOTHYROXINE SODIUM
     Indication: HYPOTHYROIDISM
     Route: 048

REACTIONS (6)
  - Suppressed lactation [Not Recovered/Not Resolved]
  - Thyroid mass [Recovered/Resolved]
  - Hypertension [Recovered/Resolved]
  - Complication of pregnancy [Unknown]
  - Premature delivery [Not Recovered/Not Resolved]
  - Inappropriate schedule of drug administration [Unknown]
